FAERS Safety Report 5650295-1 (Version None)
Quarter: 2008Q1

REPORT INFORMATION
  Report Type: 
  Country: None (occurrence: None)
  Receive Date: 20080131
  Receipt Date: 20071202
  Transmission Date: 20080703
  Serious: No
  Sender: FDA-Public Use
  Company Number: US200712000310

PATIENT
  Age: 53 Year
  Sex: Female

DRUGS (1)
  1. BYETTA [Suspect]
     Dosage: SUBCUTANEOUS ; 10 UG, 2/D, SUBCUTANEOUS ; OTHER, SUBCUTANEOUS
     Route: 058
     Dates: start: 20050101

REACTIONS (3)
  - BLOOD GLUCOSE INCREASED [None]
  - INCORRECT DOSE ADMINISTERED [None]
  - WEIGHT DECREASED [None]
